FAERS Safety Report 9192399 (Version 1)
Quarter: 2013Q1

REPORT INFORMATION
  Report Type: Spontaneous
  Country: US (occurrence: US)
  Receive Date: 20130327
  Receipt Date: 20130327
  Transmission Date: 20140127
  Serious: Yes (Other)
  Sender: FDA-Public Use
  Company Number: US-JNJFOC-20130312258

PATIENT
  Sex: Female

DRUGS (6)
  1. REMICADE [Suspect]
     Indication: CROHN^S DISEASE
     Route: 042
  2. SOLU-CORTEF [Concomitant]
     Route: 065
  3. ZANTAC [Concomitant]
     Route: 065
  4. ALLOPURINOL [Concomitant]
     Route: 065
  5. CYMBALTA [Concomitant]
     Route: 065
  6. AMBIEN [Concomitant]
     Route: 065

REACTIONS (1)
  - Breast cancer [Unknown]
